FAERS Safety Report 8235354 (Version 6)
Quarter: 2014Q2

REPORT INFORMATION
  Report Type: Spontaneous
  Country: US (occurrence: US)
  Receive Date: 20111108
  Receipt Date: 20140519
  Transmission Date: 20141212
  Serious: Yes (Death, Life-Threatening, Hospitalization)
  Sender: FDA-Public Use
  Company Number: US-B.I. PHARMACEUTICALS,INC./RIDGEFIELD-2011-BP-25342BP

PATIENT
  Age: 87 Year
  Sex: Female
  Weight: 50.1 kg

DRUGS (13)
  1. PRADAXA [Suspect]
     Indication: ATRIAL FIBRILLATION
     Dosage: 300 MG
     Route: 048
     Dates: start: 20110926, end: 20111027
  2. PRADAXA [Suspect]
     Dosage: 150 MG
     Route: 048
     Dates: start: 20111027, end: 20111031
  3. FLECAINIDE [Concomitant]
     Route: 065
     Dates: start: 20111014
  4. DILTIAZEM [Concomitant]
     Dosage: 180 MG
     Route: 065
     Dates: start: 20110926
  5. CRESTOR [Concomitant]
     Dosage: 10 MG
     Route: 065
     Dates: start: 20110110
  6. LORAZEPAM [Concomitant]
     Route: 065
  7. AMIODARONE [Concomitant]
     Dosage: 200 MG
     Route: 065
  8. LASIX [Concomitant]
     Dosage: 20 MG
     Route: 065
  9. PERCOCET [Concomitant]
     Indication: PAIN
     Route: 048
  10. LOTRIMIN [Concomitant]
     Route: 061
  11. HYDROCORTISONE [Concomitant]
     Indication: RASH
     Route: 061
  12. OCEAN NASAL SPRAY [Concomitant]
     Route: 065
  13. TYLENOL [Concomitant]
     Route: 065

REACTIONS (10)
  - Cardio-respiratory arrest [Fatal]
  - Pulmonary haemorrhage [Fatal]
  - Epistaxis [Fatal]
  - Gastrointestinal haemorrhage [Fatal]
  - Bradycardia [Recovered/Resolved]
  - Hypotension [Recovered/Resolved]
  - Fall [Recovered/Resolved]
  - Head injury [Recovered/Resolved]
  - Rectal haemorrhage [Not Recovered/Not Resolved]
  - Contusion [Not Recovered/Not Resolved]
